FAERS Safety Report 26047521 (Version 1)
Quarter: 2025Q4

REPORT INFORMATION
  Report Type: Spontaneous
  Country: US (occurrence: None)
  Receive Date: 20251114
  Receipt Date: 20251114
  Transmission Date: 20260118
  Serious: Yes (Disabling)
  Sender: FDA-CTU
  Company Number: None

PATIENT
  Age: 50 Year
  Sex: Female
  Weight: 91.35 kg

DRUGS (16)
  1. ZEPBOUND [Suspect]
     Active Substance: TIRZEPATIDE
     Indication: Weight decreased
     Dosage: OTHER QUANTITY : 1 INJECTION(S);?OTHER FREQUENCY : PER WEEK;?
     Route: 058
     Dates: start: 20250318, end: 20250616
  2. DUPIXENT [Concomitant]
     Active Substance: DUPILUMAB
  3. LEVALBUTEROL [Concomitant]
     Active Substance: LEVALBUTEROL
  4. PULMICORT FLEXHALER [Concomitant]
     Active Substance: BUDESONIDE
  5. Topirimate ER [Concomitant]
  6. LAMOTRIGINE [Concomitant]
     Active Substance: LAMOTRIGINE
  7. FLUOXETINE [Concomitant]
     Active Substance: FLUOXETINE HYDROCHLORIDE
  8. ETHINYL ESTRADIOL\NORETHINDRONE ACETATE [Concomitant]
     Active Substance: ETHINYL ESTRADIOL\NORETHINDRONE ACETATE
  9. ADDERALL [Concomitant]
     Active Substance: AMPHETAMINE ASPARTATE\AMPHETAMINE SULFATE\DEXTROAMPHETAMINE SACCHARATE\DEXTROAMPHETAMINE SULFATE
  10. FLONASE [Concomitant]
     Active Substance: FLUTICASONE PROPIONATE
  11. AZITHROMYCIN [Concomitant]
     Active Substance: AZITHROMYCIN
  12. MONTELUKAST SODIUM [Concomitant]
     Active Substance: MONTELUKAST SODIUM
  13. LOSARTAN [Concomitant]
     Active Substance: LOSARTAN
  14. GABAPENTIN [Concomitant]
     Active Substance: GABAPENTIN
  15. Multivitamin daily [Concomitant]
  16. MAGNESIUM [Concomitant]
     Active Substance: MAGNESIUM

REACTIONS (2)
  - Hypoglycaemia [None]
  - Visual impairment [None]

NARRATIVE: CASE EVENT DATE: 20250428
